FAERS Safety Report 17711887 (Version 6)
Quarter: 2025Q1

REPORT INFORMATION
  Report Type: Report from Study
  Country: US (occurrence: US)
  Receive Date: 20200427
  Receipt Date: 20250120
  Transmission Date: 20250409
  Serious: No
  Sender: KYOWA
  Company Number: US-KYOWAKIRIN-2020BKK006422

PATIENT

DRUGS (11)
  1. BUROSUMAB [Suspect]
     Active Substance: BUROSUMAB
     Indication: Phosphorus metabolism disorder
     Route: 058
     Dates: start: 20200310
  2. BUROSUMAB [Suspect]
     Active Substance: BUROSUMAB
     Dosage: ALTERNATE 20 MG AND 30 MG
     Route: 058
     Dates: start: 20240628
  3. BUROSUMAB [Suspect]
     Active Substance: BUROSUMAB
     Dosage: ALTERNATE 20 MG AND 30 MG
     Route: 058
  4. BUROSUMAB [Suspect]
     Active Substance: BUROSUMAB
     Indication: Phosphorus metabolism disorder
     Dosage: 90 MG, 1X/4 WEEKS
     Route: 058
     Dates: start: 20200301, end: 20200330
  5. BUROSUMAB [Suspect]
     Active Substance: BUROSUMAB
     Indication: Hereditary hypophosphataemic rickets
     Route: 058
     Dates: start: 20200310
  6. BUROSUMAB [Suspect]
     Active Substance: BUROSUMAB
     Dosage: 30 MG, 1X/4 WEEKS
     Route: 058
     Dates: start: 20200528, end: 2020
  7. BUROSUMAB [Suspect]
     Active Substance: BUROSUMAB
     Dosage: 30 MG, 1X/4 WEEKS
     Route: 058
  8. BUROSUMAB [Suspect]
     Active Substance: BUROSUMAB
     Dosage: ALTERNATE 20 MG AND 30 MG EVERY 14 DAYS
     Route: 058
     Dates: start: 20240628
  9. BUROSUMAB [Suspect]
     Active Substance: BUROSUMAB
     Dosage: ALTERNATE 20 MG AND 30 MG EVERY 14 DAYS
     Route: 058
  10. CARBOPLATIN [Concomitant]
     Active Substance: CARBOPLATIN
     Indication: Product used for unknown indication
     Route: 065
  11. PACLITAXEL [Concomitant]
     Active Substance: PACLITAXEL
     Indication: Product used for unknown indication
     Route: 065

REACTIONS (6)
  - Blood phosphorus increased [Not Recovered/Not Resolved]
  - Restless legs syndrome [Not Recovered/Not Resolved]
  - Condition aggravated [Not Recovered/Not Resolved]
  - Muscle spasms [Not Recovered/Not Resolved]
  - Injection site pain [Recovered/Resolved]
  - Incorrect dose administered [Not Recovered/Not Resolved]

NARRATIVE: CASE EVENT DATE: 20200301
